FAERS Safety Report 20197212 (Version 10)
Quarter: 2023Q2

REPORT INFORMATION
  Report Type: Report from Study
  Country: CO (occurrence: CO)
  Receive Date: 20211217
  Receipt Date: 20230523
  Transmission Date: 20230722
  Serious: Yes (Hospitalization, Other)
  Sender: FDA-Public Use
  Company Number: CO-TAKEDA-2020TUS058912

PATIENT
  Age: 2 Year
  Sex: Male
  Weight: 17 kg

DRUGS (4)
  1. IDURSULFASE [Suspect]
     Active Substance: IDURSULFASE
     Indication: Mucopolysaccharidosis II
     Dosage: UNK UNK, 1/WEEK
     Route: 042
     Dates: start: 20200813
  2. IDURSULFASE [Suspect]
     Active Substance: IDURSULFASE
     Dosage: UNK UNK, 1/WEEK
     Route: 042
     Dates: end: 20201214
  3. IDURSULFASE [Suspect]
     Active Substance: IDURSULFASE
     Dosage: 6 GRAM, 1/WEEK
     Route: 065
  4. KIOVIG [Suspect]
     Active Substance: HUMAN IMMUNOGLOBULIN G
     Indication: Primary immunodeficiency syndrome
     Dosage: 10 GRAM, MONTHLY
     Route: 042
     Dates: start: 20220422

REACTIONS (20)
  - Primary immunodeficiency syndrome [Unknown]
  - Malaise [Unknown]
  - Platelet count decreased [Unknown]
  - Umbilical hernia [Unknown]
  - Hypersensitivity [Recovered/Resolved]
  - Oxygen saturation decreased [Unknown]
  - Dyspnoea [Recovered/Resolved]
  - Face oedema [Recovered/Resolved]
  - Cough [Recovered/Resolved]
  - Urticaria [Recovered/Resolved]
  - Pruritus [Recovered/Resolved]
  - Weight increased [Unknown]
  - Pain [Unknown]
  - Discomfort [Unknown]
  - Irritability [Unknown]
  - Infusion site pain [Recovered/Resolved]
  - Poor venous access [Recovered/Resolved]
  - Body height increased [Unknown]
  - Incorrect dose administered [Unknown]
  - Product administration interrupted [Unknown]

NARRATIVE: CASE EVENT DATE: 20201214
